FAERS Safety Report 12712518 (Version 2)
Quarter: 2016Q3

REPORT INFORMATION
  Report Type: Report from Study
  Country: CA (occurrence: CA)
  Receive Date: 20160902
  Receipt Date: 20160922
  Transmission Date: 20161109
  Serious: No
  Sender: FDA-Public Use
  Company Number: CA-ABBVIE-16K-028-1714696-00

PATIENT
  Sex: Male
  Weight: 115 kg

DRUGS (2)
  1. HUMIRA [Suspect]
     Active Substance: ADALIMUMAB
     Indication: PSORIATIC ARTHROPATHY
     Route: 058
     Dates: start: 20080819, end: 20160320
  2. HUMIRA [Suspect]
     Active Substance: ADALIMUMAB
     Route: 058
     Dates: start: 20160819

REACTIONS (2)
  - Mobility decreased [Recovered/Resolved]
  - Incision site infection [Recovered/Resolved]

NARRATIVE: CASE EVENT DATE: 2016
